FAERS Safety Report 10340755 (Version 3)
Quarter: 2014Q3

REPORT INFORMATION
  Report Type: Spontaneous
  Country: AU (occurrence: AU)
  Receive Date: 20140724
  Receipt Date: 20140731
  Transmission Date: 20150326
  Serious: Yes (Other)
  Sender: FDA-Public Use
  Company Number: AU-ALLERGAN-1416363US

PATIENT
  Age: 63 Year
  Sex: Male
  Weight: 51 kg

DRUGS (3)
  1. THIO-TEPA S OPHTHALMIC [Suspect]
     Active Substance: THIOTEPA
     Indication: PTERYGIUM
     Dosage: 6 DOSE UNSPEC. DAILY
     Route: 047
     Dates: start: 19860317, end: 19860510
  2. FML [Suspect]
     Active Substance: FLUOROMETHOLONE
     Indication: PRODUCT USED FOR UNKNOWN INDICATION
     Dosage: 4 DOSE UNSPEC. DAILY
     Dates: start: 19860317, end: 19860510
  3. CHLOROMYCETIN [Suspect]
     Active Substance: CHLORAMPHENICOL
     Indication: PROPHYLAXIS
     Dosage: 4 DOSE UNSPEC. DAILY
     Dates: start: 19860317, end: 19860510

REACTIONS (2)
  - Keratitis [Recovered/Resolved]
  - Ulcerative keratitis [Recovered/Resolved]

NARRATIVE: CASE EVENT DATE: 19860510
